FAERS Safety Report 15077156 (Version 1)
Quarter: 2018Q2

REPORT INFORMATION
  Report Type: Spontaneous
  Country: US (occurrence: US)
  Receive Date: 20180607
  Receipt Date: 20180607
  Transmission Date: 20180711
  Serious: Yes (Other)
  Sender: FDA-Public Use
  Company Number: None

PATIENT
  Age: 12 Year
  Sex: Female
  Weight: 80.4 kg

DRUGS (4)
  1. PHENTERMINE. [Suspect]
     Active Substance: PHENTERMINE
     Indication: WEIGHT DECREASED
  2. METFORMIN [Concomitant]
     Active Substance: METFORMIN HYDROCHLORIDE
  3. TOPIRAMATE. [Concomitant]
     Active Substance: TOPIRAMATE
  4. SOLIFENACIN [Concomitant]
     Active Substance: SOLIFENACIN

REACTIONS (2)
  - Overdose [None]
  - Neuropathy peripheral [None]

NARRATIVE: CASE EVENT DATE: 20180605
